FAERS Safety Report 6221540-9 (Version None)
Quarter: 2009Q2

REPORT INFORMATION
  Report Type: 
  Country: None (occurrence: None)
  Receive Date: 20090608
  Receipt Date: 20090526
  Transmission Date: 20091009
  Serious: Yes (Death, Other)
  Sender: FDA-Public Use
  Company Number: WAES 0905ESP00043

PATIENT
  Age: 56 Year
  Sex: Male

DRUGS (6)
  1. CANCIDAS [Suspect]
     Indication: FUNGAEMIA
     Dosage: 50 MG/DAILY IV ; 70 MG/DAILY IV
     Route: 042
  2. FLUCONAZOLE [Concomitant]
     Indication: ARTHRITIS BACTERIAL
  3. LINEZOLID [Concomitant]
  4. MEROPENEM [Concomitant]
  5. NOREPINEPHRINE BITARTRATE [Concomitant]
  6. VANCOMYCIN HCL [Concomitant]

REACTIONS (15)
  - ACUTE RESPIRATORY DISTRESS SYNDROME [None]
  - ACUTE RESPIRATORY FAILURE [None]
  - ARTHRITIS FUNGAL [None]
  - BONE MARROW DISORDER [None]
  - CHRONIC MYELOID LEUKAEMIA [None]
  - FUNGAEMIA [None]
  - HAEMODYNAMIC INSTABILITY [None]
  - HYPERGLYCAEMIA [None]
  - MALIGNANT NEOPLASM PROGRESSION [None]
  - MULTI-ORGAN FAILURE [None]
  - NEUTROPENIA [None]
  - PANCYTOPENIA [None]
  - RENAL FAILURE ACUTE [None]
  - SEPTIC SHOCK [None]
  - STAPHYLOCOCCAL INFECTION [None]
